FAERS Safety Report 21823423 (Version 1)
Quarter: 2023Q1

REPORT INFORMATION
  Report Type: Spontaneous
  Country: GB (occurrence: GB)
  Receive Date: 20230105
  Receipt Date: 20230105
  Transmission Date: 20230417
  Serious: Yes (Death, Other)
  Sender: FDA-Public Use
  Company Number: GB-MHRA-MED-202301031306346470-HTSFP

PATIENT
  Age: 75 Year
  Sex: Male

DRUGS (1)
  1. RISANKIZUMAB [Suspect]
     Active Substance: RISANKIZUMAB
     Indication: Psoriasis
     Dosage: 150 MG AT WEEK 0, 4 THEN 12 WEEKLY
     Route: 058
     Dates: start: 20221123

REACTIONS (2)
  - Pneumonia [Fatal]
  - Left ventricular dysfunction [Fatal]

NARRATIVE: CASE EVENT DATE: 20221217
